FAERS Safety Report 17618747 (Version 1)
Quarter: 2020Q2

REPORT INFORMATION
  Report Type: Spontaneous
  Country: US (occurrence: US)
  Receive Date: 20200402
  Receipt Date: 20200402
  Transmission Date: 20200713
  Serious: No
  Sender: FDA-Public Use
  Company Number: US-FRESENIUS KABI-FK202003337

PATIENT
  Sex: Female

DRUGS (1)
  1. FULVESTRANT INJECTION [Suspect]
     Active Substance: FULVESTRANT
     Indication: PRODUCT USED FOR UNKNOWN INDICATION
     Dosage: UNKNOWN
     Route: 065
     Dates: start: 20200330

REACTIONS (2)
  - Skin indentation [Unknown]
  - Contusion [Unknown]

NARRATIVE: CASE EVENT DATE: 20200330
